FAERS Safety Report 22079200 (Version 19)
Quarter: 2025Q3

REPORT INFORMATION
  Report Type: Spontaneous
  Country: US (occurrence: US)
  Receive Date: 20230309
  Receipt Date: 20250811
  Transmission Date: 20251021
  Serious: Yes (Other)
  Sender: PFIZER
  Company Number: US-PFIZER INC-PV202300014383

PATIENT
  Age: 59 Year
  Sex: Female

DRUGS (3)
  1. IBRANCE [Suspect]
     Active Substance: PALBOCICLIB
     Indication: Breast cancer metastatic
  2. IBRANCE [Suspect]
     Active Substance: PALBOCICLIB
     Indication: Vitamin D deficiency
     Route: 048
  3. IBRANCE [Suspect]
     Active Substance: PALBOCICLIB
     Route: 048

REACTIONS (13)
  - Blindness [Unknown]
  - Metastases to bone [Unknown]
  - Musculoskeletal discomfort [Unknown]
  - Irritability [Unknown]
  - Hypersomnia [Unknown]
  - Eye pain [Unknown]
  - Illness [Unknown]
  - Malaise [Unknown]
  - Dry eye [Unknown]
  - Vomiting [Unknown]
  - Fatigue [Unknown]
  - Migraine [Unknown]
  - Scan abnormal [Unknown]
